FAERS Safety Report 12434210 (Version 1)
Quarter: 2016Q2

REPORT INFORMATION
  Report Type: Spontaneous
  Country: TR (occurrence: TR)
  Receive Date: 20160603
  Receipt Date: 20160603
  Transmission Date: 20160815
  Serious: Yes (Other)
  Sender: FDA-Public Use
  Company Number: TR-TEVA-663972ISR

PATIENT
  Age: 15 Year
  Sex: Male

DRUGS (3)
  1. PIMOZIDE. [Suspect]
     Active Substance: PIMOZIDE
     Indication: CHRONIC TIC DISORDER
     Dosage: 3 MILLIGRAM DAILY;
     Route: 048
  2. ZOLERIP [Suspect]
     Active Substance: ARIPIPRAZOLE
     Indication: HYPOMANIA
     Dosage: 2.5 MILLIGRAM DAILY;
     Route: 048
  3. VALPROIC ACID. [Concomitant]
     Active Substance: VALPROIC ACID
     Indication: EPILEPSY

REACTIONS (1)
  - Tourette^s disorder [Not Recovered/Not Resolved]
